FAERS Safety Report 5536462-6 (Version None)
Quarter: 2007Q4

REPORT INFORMATION
  Report Type: 
  Country: None (occurrence: None)
  Receive Date: 20071206
  Receipt Date: 20071129
  Transmission Date: 20080405
  Serious: Yes (Other)
  Sender: FDA-Public Use
  Company Number: CA-MERCK-0711CAN00163

PATIENT
  Age: 29 Year
  Sex: Female

DRUGS (5)
  1. MAXALT [Suspect]
     Route: 048
  2. MAXALT [Suspect]
     Route: 048
  3. ZOLOFT [Concomitant]
     Route: 065
  4. TYLENOL W/ CODEINE NO. 3 [Concomitant]
     Route: 065
  5. INFLUENZA VIRUS VACCINE (UNSPECIFIED) [Concomitant]
     Route: 051

REACTIONS (1)
  - GRAND MAL CONVULSION [None]
